FAERS Safety Report 22018351 (Version 1)
Quarter: 2023Q1

REPORT INFORMATION
  Report Type: Spontaneous
  Country: US (occurrence: None)
  Receive Date: 20230221
  Receipt Date: 20230221
  Transmission Date: 20230418
  Serious: No
  Sender: FDA-Public Use
  Company Number: 2022A352977

PATIENT
  Age: 86 Year
  Sex: Male

DRUGS (13)
  1. TAGRISSO [Suspect]
     Active Substance: OSIMERTINIB
     Indication: Product used for unknown indication
     Route: 048
  2. TAGRISSO [Suspect]
     Active Substance: OSIMERTINIB
     Indication: Lung carcinoma cell type unspecified stage 0
     Route: 048
  3. TAGRISSO [Suspect]
     Active Substance: OSIMERTINIB
     Indication: Product used for unknown indication
     Route: 048
     Dates: end: 20221015
  4. TAGRISSO [Suspect]
     Active Substance: OSIMERTINIB
     Indication: Lung carcinoma cell type unspecified stage 0
     Route: 048
     Dates: end: 20221015
  5. XTANDI [Suspect]
     Active Substance: ENZALUTAMIDE
     Indication: Lung carcinoma cell type unspecified stage 0
     Route: 048
     Dates: start: 202111
  6. XTANDI [Suspect]
     Active Substance: ENZALUTAMIDE
     Indication: Prostate cancer
     Route: 048
     Dates: start: 202111
  7. XTANDI [Suspect]
     Active Substance: ENZALUTAMIDE
     Indication: Bone neoplasm
     Route: 048
     Dates: start: 202111
  8. XTANDI [Suspect]
     Active Substance: ENZALUTAMIDE
     Indication: Lung carcinoma cell type unspecified stage 0
     Route: 048
     Dates: start: 202111
  9. XTANDI [Suspect]
     Active Substance: ENZALUTAMIDE
     Indication: Lung carcinoma cell type unspecified stage 0
     Route: 048
     Dates: start: 202201
  10. XTANDI [Suspect]
     Active Substance: ENZALUTAMIDE
     Indication: Prostate cancer
     Route: 048
     Dates: start: 202201
  11. XTANDI [Suspect]
     Active Substance: ENZALUTAMIDE
     Indication: Bone neoplasm
     Route: 048
     Dates: start: 202201
  12. XTANDI [Suspect]
     Active Substance: ENZALUTAMIDE
     Indication: Lung carcinoma cell type unspecified stage 0
     Route: 048
     Dates: start: 202201
  13. IMODIUM [Concomitant]
     Active Substance: LOPERAMIDE HYDROCHLORIDE

REACTIONS (5)
  - Diarrhoea [Recovered/Resolved]
  - Rash pruritic [Recovered/Resolved]
  - Rash [Unknown]
  - Therapy cessation [Unknown]
  - Off label use [Unknown]

NARRATIVE: CASE EVENT DATE: 20211204
